FAERS Safety Report 7401846-8 (Version None)
Quarter: 2011Q2

REPORT INFORMATION
  Report Type: 
  Country: None (occurrence: None)
  Receive Date: 20110408
  Receipt Date: 20110309
  Transmission Date: 20111010
  Serious: Yes (Hospitalization)
  Sender: FDA-Public Use
  Company Number: US-BAYER-200938610GPV

PATIENT
  Sex: Male
  Weight: 80.909 kg

DRUGS (19)
  1. COUMADIN [Suspect]
     Indication: ATRIAL FIBRILLATION
     Route: 048
     Dates: start: 19940101
  2. VITAMIN D [Concomitant]
     Indication: MEDICAL DIET
     Route: 048
     Dates: start: 20070101
  3. LABETALOL [Concomitant]
     Indication: HYPERTENSION
     Route: 048
     Dates: start: 20060101, end: 20091102
  4. IMDUR [Concomitant]
     Indication: CORONARY ARTERY DISEASE
     Route: 048
     Dates: start: 19940101
  5. VITAMIN B-12 [Concomitant]
     Indication: MEDICAL DIET
     Route: 048
     Dates: start: 20070101
  6. OMEPRAZOLE [Concomitant]
     Indication: GASTROOESOPHAGEAL REFLUX DISEASE
     Route: 048
     Dates: start: 20000101
  7. NOVOLOG [Concomitant]
     Indication: DIABETES MELLITUS
     Dosage: 100 U/ML (VIA PUMP)
     Route: 058
     Dates: start: 20030101
  8. LASIX [Concomitant]
     Indication: HYPERTENSION
     Route: 048
     Dates: start: 19940101
  9. IRON [Concomitant]
     Indication: MEDICAL DIET
     Route: 048
     Dates: start: 20070101
  10. AZOR [Concomitant]
  11. ASPIRIN [Suspect]
     Indication: CARDIOVASCULAR EVENT PROPHYLAXIS
     Route: 048
     Dates: start: 19940101
  12. TERAZOSIN HYDROCHLORIDE [Concomitant]
     Indication: HYPERTENSION
     Route: 048
     Dates: start: 20050101
  13. ZOCOR [Concomitant]
     Indication: HYPERLIPIDAEMIA
     Route: 048
     Dates: start: 19960101
  14. NITROSTAT [Concomitant]
     Indication: ANGINA PECTORIS
     Dates: start: 19940101
  15. RECOMBINANT PROTEIN OF HUMAN VEGF RECEPTORS (VEGFR1+VEGFR2) [Suspect]
     Indication: DIABETIC RETINAL OEDEMA
     Dosage: 2 MG, PRN
     Route: 031
     Dates: start: 20090316
  16. TRICOR [Concomitant]
     Indication: HYPERLIPIDAEMIA
     Route: 048
     Dates: start: 20060101
  17. LOVAZA [Concomitant]
     Indication: MEDICAL DIET
     Route: 048
     Dates: start: 20070101
  18. NORVASC [Concomitant]
     Indication: HYPERTENSION
     Route: 048
     Dates: start: 19990101
  19. ALTACE [Concomitant]
     Indication: HYPERTENSION
     Route: 048
     Dates: start: 20000101

REACTIONS (4)
  - TRAUMATIC BRAIN INJURY [None]
  - SYNCOPE [None]
  - COAGULOPATHY [None]
  - GASTROINTESTINAL HAEMORRHAGE [None]
